FAERS Safety Report 7829182-6 (Version None)
Quarter: 2011Q4

REPORT INFORMATION
  Report Type: 
  Country: None (occurrence: None)
  Receive Date: 20111020
  Receipt Date: 20111013
  Transmission Date: 20120403
  Serious: Yes (Hospitalization, Other)
  Sender: FDA-Public Use
  Company Number: PHHY2011DE67386

PATIENT
  Sex: Male
  Weight: 67 kg

DRUGS (10)
  1. AFINITOR [Suspect]
     Indication: RENAL CELL CARCINOMA
     Dosage: 10 MG, QD
     Route: 048
     Dates: start: 20101115
  2. AT I ANTAGONISTS [Concomitant]
  3. IRENAT [Concomitant]
  4. HEPARIN [Concomitant]
  5. PROTON PUMP INHIBITORS [Concomitant]
  6. BETA BLOCKERS [Concomitant]
  7. AFINITOR [Suspect]
     Dosage: 5 MG, QD
     Route: 048
     Dates: end: 20110711
  8. ANTICHOLINERGICS [Concomitant]
  9. OPIOIDS [Concomitant]
  10. LEVOTHYROXINE SODIUM [Concomitant]

REACTIONS (8)
  - CHILLS [None]
  - GENERAL PHYSICAL HEALTH DETERIORATION [None]
  - NEOPLASM PROGRESSION [None]
  - NEOPLASM MALIGNANT [None]
  - INCREASED VISCOSITY OF BRONCHIAL SECRETION [None]
  - COUGH [None]
  - PNEUMONIA [None]
  - PYREXIA [None]
